FAERS Safety Report 5231156-9 (Version None)
Quarter: 2007Q1

REPORT INFORMATION
  Report Type: 
  Country: None (occurrence: None)
  Receive Date: 20070206
  Receipt Date: 20070126
  Transmission Date: 20070707
  Serious: Yes (Hospitalization)
  Sender: FDA-Public Use
  Company Number: US-ROCHE-480023

PATIENT
  Age: 44 Year
  Sex: Male

DRUGS (3)
  1. FUZEON [Suspect]
     Dosage: DISCONTINUED WHEN HOSPITALISED ON AN UNSPECIFIED DATE.
     Route: 058
  2. FUZEON [Suspect]
     Dosage: TREATMENT WAS RESTARTED ON THE NIGHT OF 25 JANUARY 2007 AFTER AN UNSPECIFIED AMOUNT OF TIME FOLLOWI+
     Route: 058
     Dates: start: 20070125
  3. UNSPECIFIED DRUGS [Concomitant]
     Dosage: DISCONTINUED WHEN HE WAS HOSPITALISED.

REACTIONS (2)
  - EROSIVE OESOPHAGITIS [None]
  - ULCER HAEMORRHAGE [None]
